FAERS Safety Report 6672530-3 (Version None)
Quarter: 2010Q2

REPORT INFORMATION
  Report Type: 
  Country: None (occurrence: None)
  Receive Date: 20100407
  Receipt Date: 20100407
  Transmission Date: 20101027
  Serious: Yes (Other)
  Sender: FDA-Public Use
  Company Number: None

PATIENT
  Sex: Male
  Weight: 116.5744 kg

DRUGS (1)
  1. FIORINAL W/CODEINE [Suspect]
     Indication: HEADACHE
     Dosage: 1 BID PRN PO
     Route: 048
     Dates: start: 20090101

REACTIONS (2)
  - DRUG INEFFECTIVE [None]
  - HEADACHE [None]
